FAERS Safety Report 5207232-3 (Version None)
Quarter: 2007Q1

REPORT INFORMATION
  Report Type: 
  Country: None (occurrence: None)
  Receive Date: 20070112
  Receipt Date: 20070109
  Transmission Date: 20070707
  Serious: Yes (Life-Threatening)
  Sender: FDA-Public Use
  Company Number: 2007CG00052

PATIENT
  Age: 36 Year
  Sex: Male

DRUGS (5)
  1. CRESTOR [Suspect]
     Route: 048
     Dates: end: 20061101
  2. ASPIRIN [Concomitant]
  3. TIMOPTIC [Concomitant]
     Route: 047
  4. LEVOTHYROXINE SODIUM [Concomitant]
  5. AUGMENTIN '125' [Concomitant]
     Dates: start: 20061104

REACTIONS (3)
  - HAEMOLYTIC ANAEMIA [None]
  - NERVOUS SYSTEM DISORDER [None]
  - THROMBOCYTOPENIA [None]
